FAERS Safety Report 16730086 (Version 1)
Quarter: 2019Q3

REPORT INFORMATION
  Report Type: Report from Study
  Country: US (occurrence: US)
  Receive Date: 20190822
  Receipt Date: 20190822
  Transmission Date: 20191005
  Serious: Yes (Hospitalization)
  Sender: FDA-Public Use
  Company Number: US-PACIRA-201400018

PATIENT
  Age: 53 Year
  Sex: Male
  Weight: 99 kg

DRUGS (20)
  1. TYLENOL [Concomitant]
     Active Substance: ACETAMINOPHEN
     Dosage: 650 MG, 1X, FREQUENCY : 1X
     Route: 048
     Dates: start: 20140709, end: 20140709
  2. ZYRTEC [Concomitant]
     Active Substance: CETIRIZINE HYDROCHLORIDE
     Dosage: 10 MG, 1X, FREQUENCY : 1X
     Route: 048
     Dates: start: 20140709, end: 20140709
  3. LOVENOX [Concomitant]
     Active Substance: ENOXAPARIN SODIUM
     Dosage: 1 ML, Q12H. HOLD WHEN PLATELET COUNT IS LESS THAN 50 000, FREQUENCY : Q12H
     Route: 058
  4. ZOFRAN [Concomitant]
     Active Substance: ONDANSETRON HYDROCHLORIDE
     Indication: NAUSEA
     Dosage: 1 DF, Q8H AS NEEDED FOR NAUSEA, FREQUENCY : Q8H
  5. PRED FORT [Concomitant]
     Active Substance: PREDNISOLONE ACETATE
     Dosage: 2 DF (DROPS) INTO BOTH EYES 3 TIMES DAILY, FREQUENCY : DAILY
     Route: 047
  6. PEG/L-ASPARAGINASE [Concomitant]
     Active Substance: PEGASPARGASE
     Indication: ACUTE LYMPHOCYTIC LEUKAEMIA
     Dosage: DOSE PER PROTOCOL: 1000 IU/M2. ROUTE PER PROTOCOL.
     Route: 042
     Dates: start: 20140423
  7. ETOPOSIDE. [Concomitant]
     Active Substance: ETOPOSIDE
     Indication: ACUTE LYMPHOCYTIC LEUKAEMIA
  8. DIFLUCAN [Concomitant]
     Active Substance: FLUCONAZOLE
     Indication: NEUTROPHIL COUNT DECREASED
     Dosage: 400 MG, DAILY WHEN NEUTROPENIC WITH ANC {1000, FREQUENCY : DAILY
     Route: 048
  9. MULTIVITAMIN [Concomitant]
     Active Substance: VITAMINS
     Dosage: 1 DF (TABLET), DAILY, FREQUENCY : DAILY, THERAPY : ONGOING
     Route: 048
  10. SENOKOT [Concomitant]
     Active Substance: SENNOSIDES
     Indication: CONSTIPATION
     Dosage: TWO 8.6 MG TABLETS AT BEDTIME AS NEEDED, FREQUENCY : DAILY
     Route: 048
  11. DEPOCYT [Suspect]
     Active Substance: CYTARABINE
     Indication: ACUTE LYMPHOCYTIC LEUKAEMIA
     Dosage: ON DAY 1 (09APR14) AND 15 (23APR14) DURING CYCLE 1. DOSE PER PROTOCOL: 25 MG, FREQUENCY : 2X
     Route: 037
     Dates: start: 20140409
  12. CIPRO [Concomitant]
     Active Substance: CIPROFLOXACIN HYDROCHLORIDE
     Indication: NEUTROPHIL COUNT DECREASED
     Dosage: 500 MG, BID WHEN NEUTROPENIC (ANC {1000), FREQUENCY : BID
     Route: 048
  13. NEULASTA [Concomitant]
     Active Substance: PEGFILGRASTIM
     Dosage: AFTER CYCLE 1B (NOT OTHERWISE SPECIFIED)
  14. MIRALAX [Concomitant]
     Active Substance: POLYETHYLENE GLYCOL 3350
     Indication: CONSTIPATION
     Dosage: 1 DF (PACKET), DAILY AS NEEDED, FREQUENCY : DAILY
     Route: 048
  15. COMPAZINE [Concomitant]
     Active Substance: PROCHLORPERAZINE MALEATE
     Indication: NAUSEA
     Dosage: 10 MG, Q6H AS NEEDED FOR NAUSEA IF ZOFRAN INEFFECTIVE, FREQUENCY : Q6H
     Route: 048
  16. ZOVIRAX [Concomitant]
     Active Substance: ACYCLOVIR
     Dosage: 400 MG, BID, FREQUENCY : BID, THERAPY : ONGOING
     Route: 048
  17. NEXIUM [Concomitant]
     Active Substance: ESOMEPRAZOLE MAGNESIUM
     Dosage: 40 MG EVERY MORNING (BEFORE BREAKFAST), FREQUENCY : DAILY
     Route: 048
  18. BACTRIM DS [Concomitant]
     Active Substance: SULFAMETHOXAZOLE\TRIMETHOPRIM
     Dosage: 1 800-160 MG TABLET, BID ON MONDAYS AND THURSDAYS
     Route: 048
  19. METHOTREXATE LPF [Concomitant]
     Indication: ACUTE LYMPHOCYTIC LEUKAEMIA
     Dosage: THERPAY INFORMATION UNKNOWN
  20. COLACE [Concomitant]
     Active Substance: DOCUSATE SODIUM
     Indication: CONSTIPATION
     Dosage: 250 MG, BID AS NEEDED, FREQUENCY : BID
     Route: 048

REACTIONS (1)
  - Febrile neutropenia [Unknown]

NARRATIVE: CASE EVENT DATE: 20140709
